FAERS Safety Report 23916643 (Version 4)
Quarter: 2024Q2

REPORT INFORMATION
  Report Type: Spontaneous
  Country: GB (occurrence: GB)
  Receive Date: 20240529
  Receipt Date: 20240626
  Transmission Date: 20240716
  Serious: Yes (Hospitalization, Other)
  Sender: FDA-Public Use
  Company Number: GB-DSJP-DSE-2024-123058

PATIENT
  Age: 74 Year
  Sex: Male

DRUGS (3)
  1. ENHERTU [Suspect]
     Active Substance: FAM-TRASTUZUMAB DERUXTECAN-NXKI
     Indication: Cholangiocarcinoma
     Dosage: UNK UNK, CYCLIC
     Route: 065
     Dates: start: 20240208, end: 20240208
  2. ENHERTU [Suspect]
     Active Substance: FAM-TRASTUZUMAB DERUXTECAN-NXKI
     Indication: Metastases to liver
     Dosage: UNK UNK, CYCLIC
     Route: 065
     Dates: start: 20240229, end: 20240229
  3. ENHERTU [Suspect]
     Active Substance: FAM-TRASTUZUMAB DERUXTECAN-NXKI
     Dosage: UNK UNK, CYCLIC
     Route: 065
     Dates: start: 20240412, end: 20240412

REACTIONS (5)
  - General physical health deterioration [Unknown]
  - Drug ineffective for unapproved indication [Not Recovered/Not Resolved]
  - Disease progression [Not Recovered/Not Resolved]
  - Sepsis [Unknown]
  - Off label use [Unknown]

NARRATIVE: CASE EVENT DATE: 20240208
